FAERS Safety Report 9726480 (Version 1)
Quarter: 2013Q4

REPORT INFORMATION
  Report Type: Spontaneous
  Country: US (occurrence: None)
  Receive Date: 20131202
  Receipt Date: 20131202
  Transmission Date: 20140711
  Serious: Yes (Hospitalization)
  Sender: FDA-Public Use
  Company Number: None

PATIENT
  Age: 75 Year
  Sex: Female

DRUGS (1)
  1. STIVARGA 40MG BAYER [Suspect]
     Indication: COLORECTAL CANCER
     Dosage: 2 TABLETS DAILY  PO
     Route: 048
     Dates: start: 20130917, end: 20131121

REACTIONS (1)
  - Myocardial infarction [None]
